FAERS Safety Report 7243763-2 (Version None)
Quarter: 2011Q1

REPORT INFORMATION
  Report Type: 
  Country: None (occurrence: None)
  Receive Date: 20110125
  Receipt Date: 20110119
  Transmission Date: 20110831
  Serious: No
  Sender: FDA-Public Use
  Company Number: US-PFIZER INC-2007082584

PATIENT
  Sex: Female
  Weight: 54.5 kg

DRUGS (2)
  1. LIPITOR [Suspect]
     Indication: BLOOD CHOLESTEROL INCREASED
     Dosage: 40 MG DAILY
     Dates: start: 20020101, end: 20070930
  2. METOPROLOL [Concomitant]
     Indication: ARRHYTHMIA
     Dosage: UNK

REACTIONS (4)
  - ABDOMINAL DISTENSION [None]
  - MYALGIA [None]
  - BLOOD BILIRUBIN INCREASED [None]
  - FLATULENCE [None]
